FAERS Safety Report 7281223-3 (Version None)
Quarter: 2011Q1

REPORT INFORMATION
  Report Type: 
  Country: None (occurrence: None)
  Receive Date: 20110208
  Receipt Date: 20110131
  Transmission Date: 20110831
  Serious: Yes (Death, Other)
  Sender: FDA-Public Use
  Company Number: CHPA2011US02047

PATIENT
  Age: 40 Year
  Sex: Male

DRUGS (2)
  1. ACETAMINOPHEN [Suspect]
  2. DIPHENHYDRAMINE [Suspect]

REACTIONS (19)
  - HYPOTENSION [None]
  - CARDIO-RESPIRATORY ARREST [None]
  - LIPASE INCREASED [None]
  - BLOOD BILIRUBIN INCREASED [None]
  - SENSORY DISTURBANCE [None]
  - BLOOD CREATINE INCREASED [None]
  - HEPATIC NECROSIS [None]
  - MUCOSAL DRYNESS [None]
  - COMPLETED SUICIDE [None]
  - MULTIPLE DRUG OVERDOSE [None]
  - AMMONIA INCREASED [None]
  - AGGRESSION [None]
  - HEPATOMEGALY [None]
  - HEART RATE INCREASED [None]
  - INTERNATIONAL NORMALISED RATIO INCREASED [None]
  - MUCOUS MEMBRANE DISORDER [None]
  - METABOLIC ACIDOSIS [None]
  - ALANINE AMINOTRANSFERASE INCREASED [None]
  - ASPARTATE AMINOTRANSFERASE INCREASED [None]
